FAERS Safety Report 4867460-3 (Version None)
Quarter: 2005Q4

REPORT INFORMATION
  Report Type: 
  Country: None (occurrence: None)
  Receive Date: 20051227
  Receipt Date: 20051227
  Transmission Date: 20060501
  Serious: Yes (Other)
  Sender: FDA-Public Use
  Company Number: None

PATIENT
  Age: 87 Year
  Sex: Female
  Weight: 72.5755 kg

DRUGS (1)
  1. CATAPRES-TTS-1 [Suspect]
     Indication: HYPERTENSION
     Dosage: 1 PATCH   ONCE WEEKLY   TRANSDERMAL
     Route: 062
     Dates: start: 20051216, end: 20051217

REACTIONS (1)
  - APPLICATION SITE VESICLES [None]
